FAERS Safety Report 5079685-5 (Version None)
Quarter: 2006Q3

REPORT INFORMATION
  Report Type: 
  Country: None (occurrence: None)
  Receive Date: 20060808
  Receipt Date: 20060721
  Transmission Date: 20061208
  Serious: Yes (Other)
  Sender: FDA-Public Use
  Company Number: US200605002196

PATIENT
  Age: 73 Year
  Sex: Male

DRUGS (4)
  1. HUMALOG MIX 75/25 [Suspect]
     Indication: DIABETES MELLITUS
     Dosage: SEE IMAGE
  2. HUMALOG MIX 75/25 [Suspect]
  3. HUMALOG MIX 75/25 [Suspect]
  4. HUMALOX MIX 25L / 75NPL PEN (HUMALOG MIX 25L / 75NPL PEN) PEN, DISPOSA [Concomitant]

REACTIONS (9)
  - BLINDNESS [None]
  - DEVICE MALFUNCTION [None]
  - DIABETIC RETINOPATHY [None]
  - INTRAOCULAR PRESSURE INCREASED [None]
  - PANCREATITIS [None]
  - PHARMACEUTICAL PRODUCT COMPLAINT [None]
  - RETINAL DETACHMENT [None]
  - VISION BLURRED [None]
  - VISUAL DISTURBANCE [None]
